FAERS Safety Report 24794655 (Version 1)
Quarter: 2024Q4

REPORT INFORMATION
  Report Type: Report from Study
  Country: US (occurrence: US)
  Receive Date: 20241231
  Receipt Date: 20241231
  Transmission Date: 20250115
  Serious: Yes (Other)
  Sender: TAKEDA
  Company Number: US-TAKEDA-2024TUS064855

PATIENT
  Sex: Female
  Weight: 108.8 kg

DRUGS (5)
  1. IXAZOMIB [Suspect]
     Active Substance: IXAZOMIB
     Indication: Plasma cell myeloma
     Dosage: 4 MILLIGRAM
  2. IXAZOMIB [Suspect]
     Active Substance: IXAZOMIB
     Indication: Plasma cell myeloma
     Dosage: 4 MILLIGRAM
  3. IXAZOMIB [Suspect]
     Active Substance: IXAZOMIB
     Dosage: 4 MILLIGRAM
  4. PREDNISONE [Suspect]
     Active Substance: PREDNISONE
     Indication: Product used for unknown indication
     Dosage: UNK
  5. OXYCODONE [Suspect]
     Active Substance: OXYCODONE
     Indication: Pain
     Dosage: UNK

REACTIONS (20)
  - Lung neoplasm malignant [Unknown]
  - Spinal fracture [Unknown]
  - Oesophageal disorder [Unknown]
  - Hyperphagia [Unknown]
  - Glycosylated haemoglobin decreased [Unknown]
  - Hiatus hernia [Unknown]
  - Drug hypersensitivity [Unknown]
  - Blood glucose increased [Unknown]
  - Arthritis [Unknown]
  - Cough [Unknown]
  - Musculoskeletal pain [Unknown]
  - Rib fracture [Unknown]
  - Fall [Unknown]
  - Confusional state [Unknown]
  - Stress [Unknown]
  - Tearfulness [Unknown]
  - Bone pain [Unknown]
  - Product use complaint [Unknown]
  - Constipation [Unknown]
  - Back pain [Unknown]
